FAERS Safety Report 24590911 (Version 4)
Quarter: 2025Q2

REPORT INFORMATION
  Report Type: Report from Study
  Country: US (occurrence: US)
  Receive Date: 20241107
  Receipt Date: 20250530
  Transmission Date: 20250716
  Serious: No
  Sender: SUNOVION
  Company Number: US-SUMITOMO PHARMA SWITZERLAND GMBH-2024SPA004704

PATIENT

DRUGS (3)
  1. ORGOVYX [Suspect]
     Active Substance: RELUGOLIX
     Indication: Prostate cancer
     Dosage: 360 MG, SINGLE
     Route: 048
     Dates: start: 20241002, end: 20241002
  2. ORGOVYX [Suspect]
     Active Substance: RELUGOLIX
     Dosage: 120 MG, QD
     Route: 048
     Dates: start: 20241003
  3. NUBEQA [Concomitant]
     Active Substance: DAROLUTAMIDE
     Route: 065

REACTIONS (11)
  - White blood cell count decreased [Recovering/Resolving]
  - Nail pigmentation [Unknown]
  - Ageusia [Unknown]
  - Epistaxis [Recovered/Resolved]
  - White blood cell count increased [Unknown]
  - Limb injury [Unknown]
  - Micturition urgency [Unknown]
  - Nocturia [Unknown]
  - Red blood cell count decreased [Unknown]
  - Fatigue [Unknown]
  - Insomnia [Unknown]
